FAERS Safety Report 10450649 (Version 2)
Quarter: 2014Q4

REPORT INFORMATION
  Report Type: Report from Study
  Country: US (occurrence: US)
  Receive Date: 20140912
  Receipt Date: 20141001
  Transmission Date: 20150528
  Serious: Yes (Other)
  Sender: FDA-Public Use
  Company Number: US-AMGEN-USASP2014068393

PATIENT
  Age: 59 Year
  Sex: Female

DRUGS (3)
  1. PLAQUENIL [Concomitant]
     Active Substance: HYDROXYCHLOROQUINE SULFATE
     Dosage: 400 MG, QD
  2. METHOTREXATE [Concomitant]
     Active Substance: METHOTREXATE
     Dosage: 20 MG, QWK
     Route: 048
  3. ENBREL [Suspect]
     Active Substance: ETANERCEPT
     Indication: RHEUMATOID ARTHRITIS
     Dosage: 50 MG, QWK
     Route: 065
     Dates: start: 20140307, end: 20140917

REACTIONS (14)
  - Headache [Not Recovered/Not Resolved]
  - Visual impairment [Unknown]
  - Muscular weakness [Unknown]
  - Depression [Unknown]
  - Vision blurred [Unknown]
  - Mobility decreased [Unknown]
  - Vomiting [Unknown]
  - Asthenia [Unknown]
  - Dizziness [Unknown]
  - Sudden onset of sleep [Unknown]
  - Nausea [Unknown]
  - Aphasia [Unknown]
  - Somnolence [Unknown]
  - Inappropriate affect [Unknown]

NARRATIVE: CASE EVENT DATE: 2014
